FAERS Safety Report 4812184-1 (Version None)
Quarter: 2005Q4

REPORT INFORMATION
  Report Type: 
  Country: None (occurrence: None)
  Receive Date: 20051028
  Receipt Date: 20040903
  Transmission Date: 20060501
  Serious: No
  Sender: FDA-Public Use
  Company Number: US-GLAXOSMITHKLINE-A0525401A

PATIENT
  Age: 74 Year
  Sex: Female

DRUGS (12)
  1. ADVAIR DISKUS 100/50 [Suspect]
     Indication: DRUG USE FOR UNKNOWN INDICATION
     Dosage: 1PUFF TWICE PER DAY
     Route: 055
     Dates: start: 20040601
  2. ALBUTEROL [Concomitant]
  3. LOPRESSOR [Concomitant]
  4. VERAPAMIL [Concomitant]
  5. CLONIDINE [Concomitant]
  6. PROTONIX [Concomitant]
  7. LORATADINE [Concomitant]
  8. XANAX [Concomitant]
  9. ZOCOR [Concomitant]
  10. VICODIN ES [Concomitant]
  11. COLACE [Concomitant]
  12. LASIX [Concomitant]

REACTIONS (1)
  - PHARYNGOLARYNGEAL PAIN [None]
